FAERS Safety Report 17451769 (Version 2)
Quarter: 2020Q1

REPORT INFORMATION
  Report Type: Report from Study
  Country: DE (occurrence: DE)
  Receive Date: 20200224
  Receipt Date: 20200323
  Transmission Date: 20200409
  Serious: Yes (Hospitalization)
  Sender: FDA-Public Use
  Company Number: DE-EISAI MEDICAL RESEARCH-EC-2020-070564

PATIENT
  Age: 67 Year
  Sex: Female
  Weight: 79 kg

DRUGS (17)
  1. LENVATINIB [Suspect]
     Active Substance: LENVATINIB
     Dosage: STARING DOSE AT 12 MG, FLUCTUATED DOSAGE
     Route: 048
     Dates: start: 20200107
  2. OMEPRAZOLE. [Concomitant]
     Active Substance: OMEPRAZOLE
     Dates: start: 200001
  3. HYDROCHLOROTHIAZIDE. [Concomitant]
     Active Substance: HYDROCHLOROTHIAZIDE
     Dates: start: 200001
  4. PROTAPHANE [Concomitant]
     Active Substance: INSULIN HUMAN
     Dates: start: 201302
  5. NOVALGIN [Concomitant]
     Dates: start: 200001
  6. PEMBROLIZUMAB. [Suspect]
     Active Substance: PEMBROLIZUMAB
     Route: 042
     Dates: start: 20200107
  7. DEKRISTOL [Concomitant]
     Active Substance: CHOLECALCIFEROL
     Dates: start: 201801
  8. KALINOR [Concomitant]
     Dates: start: 20191127
  9. MAGNESIUM [Concomitant]
     Active Substance: MAGNESIUM
     Dates: start: 20191127
  10. LENVATINIB [Suspect]
     Active Substance: LENVATINIB
     Indication: HEPATOCELLULAR CARCINOMA
     Dosage: BODY WEIGHT (BW) GREATER THAN OR EQUAL TO 60 KG
     Route: 048
     Dates: start: 20191105, end: 20191208
  11. PEMBROLIZUMAB. [Suspect]
     Active Substance: PEMBROLIZUMAB
     Route: 042
     Dates: start: 20191127, end: 20191127
  12. LENVATINIB [Suspect]
     Active Substance: LENVATINIB
     Dosage: BODY WEIGHT (BW) GREATER THAN OR EQUAL TO 60 KG
     Route: 048
     Dates: start: 20191210, end: 20191220
  13. PEMBROLIZUMAB. [Suspect]
     Active Substance: PEMBROLIZUMAB
     Indication: HEPATOCELLULAR CARCINOMA
     Route: 042
     Dates: start: 20191105, end: 20191105
  14. SIMVASTATIN. [Concomitant]
     Active Substance: SIMVASTATIN
     Dates: start: 201901
  15. BISOPROLOL [Concomitant]
     Active Substance: BISOPROLOL
     Dates: start: 200001
  16. TILIDIN [Concomitant]
     Active Substance: NALOXONE HYDROCHLORIDE\TILIDINE HYDROCHLORIDE
     Dates: start: 201401
  17. RAMIPRIL. [Concomitant]
     Active Substance: RAMIPRIL
     Dates: start: 20191127, end: 20191210

REACTIONS (1)
  - Diarrhoea [Not Recovered/Not Resolved]

NARRATIVE: CASE EVENT DATE: 20191211
